FAERS Safety Report 13277981 (Version 11)
Quarter: 2024Q4

REPORT INFORMATION
  Report Type: Spontaneous
  Country: US (occurrence: US)
  Receive Date: 20170228
  Receipt Date: 20241127
  Transmission Date: 20250115
  Serious: Yes (Hospitalization, Other)
  Sender: PFIZER
  Company Number: US-PFIZER INC-2017079099

PATIENT
  Age: 47 Year
  Sex: Male
  Weight: 86 kg

DRUGS (13)
  1. SOMAVERT [Suspect]
     Active Substance: PEGVISOMANT
     Indication: Acromegaly
     Dosage: 15 MG, DAILY
     Dates: start: 2000
  2. SOMAVERT [Suspect]
     Active Substance: PEGVISOMANT
     Indication: Blood growth hormone increased
     Dosage: 15 MG, DAILY
     Route: 058
     Dates: start: 20030101
  3. SOMAVERT [Suspect]
     Active Substance: PEGVISOMANT
     Dosage: 15 MG, UNK
     Dates: start: 200403
  4. SOMAVERT [Suspect]
     Active Substance: PEGVISOMANT
     Dosage: 15 MG, CYCLIC (5 DAYS ON AND 1 DAY OFF)
     Route: 058
     Dates: start: 2014
  5. SOMAVERT [Suspect]
     Active Substance: PEGVISOMANT
     Dosage: 10 MG, DAILY
  6. SOMAVERT [Suspect]
     Active Substance: PEGVISOMANT
     Dosage: 15 MG, EVERY OTHER DAY
  7. SACCHAROMYCES CEREVISIAE [Concomitant]
     Active Substance: SACCHAROMYCES CEREVISIAE
     Dosage: UNK
  8. PENTASA [Concomitant]
     Active Substance: MESALAMINE
     Indication: Crohn^s disease
     Dosage: 750 MG, 3X/DAY
     Route: 048
  9. TOCOTRIENOL [Concomitant]
     Dosage: UNK
  10. LAURICIDIN [Concomitant]
     Dosage: UNK
  11. PEPPERMINT OIL [Concomitant]
     Active Substance: PEPPERMINT OIL
     Dosage: UNK
     Dates: end: 20170301
  12. METOPROLOL [Concomitant]
     Active Substance: METOPROLOL
     Indication: Hypertension
     Dosage: UNK
  13. CANDESARTAN [Concomitant]
     Active Substance: CANDESARTAN
     Indication: Hypertension
     Dosage: UNK

REACTIONS (9)
  - Hypertension [Unknown]
  - Intestinal haemorrhage [Unknown]
  - Off label use [Unknown]
  - Hepatic enzyme increased [Recovered/Resolved]
  - Diarrhoea [Not Recovered/Not Resolved]
  - Myalgia [Not Recovered/Not Resolved]
  - Muscle atrophy [Not Recovered/Not Resolved]
  - Decreased appetite [Not Recovered/Not Resolved]
  - Cardiac disorder [Unknown]

NARRATIVE: CASE EVENT DATE: 20000101
